FAERS Safety Report 9168160 (Version 2)
Quarter: 2013Q1

REPORT INFORMATION
  Report Type: Spontaneous
  Country: DE (occurrence: None)
  Receive Date: 20130225
  Receipt Date: 20130304
  Transmission Date: 20140127
  Serious: Yes (Other)
  Sender: FDA-Public Use
  Company Number: 2013034795

PATIENT
  Age: 35 Year
  Sex: Female

DRUGS (3)
  1. PRIVIGEN [Suspect]
     Indication: HUMORAL IMMUNE DEFECT
     Route: 042
     Dates: start: 20121010, end: 20121010
  2. ANTISPASMODICS/ANTICHOLINERGICS (ANTISPASMODICS/ANTICHOLINERGICS) [Concomitant]
  3. SALBUTAMOL (SALBUTAMOL) [Concomitant]

REACTIONS (4)
  - Bronchial obstruction [None]
  - Hypersensitivity [None]
  - Bronchospasm [None]
  - Infusion related reaction [None]
